FAERS Safety Report 5115891-9 (Version None)
Quarter: 2006Q3

REPORT INFORMATION
  Report Type: 
  Country: None (occurrence: None)
  Receive Date: 20060927
  Receipt Date: 20050808
  Transmission Date: 20061208
  Serious: No
  Sender: FDA-Public Use
  Company Number: PR-BRISTOL-MYERS SQUIBB COMPANY-13070503

PATIENT

DRUGS (1)
  1. DEFINITY [Suspect]

REACTIONS (2)
  - BACK PAIN [None]
  - HEADACHE [None]
